FAERS Safety Report 23255647 (Version 1)
Quarter: 2023Q4

REPORT INFORMATION
  Report Type: Spontaneous
  Country: US (occurrence: US)
  Receive Date: 20231203
  Receipt Date: 20231203
  Transmission Date: 20240109
  Serious: No
  Sender: FDA-Public Use
  Company Number: US-SA-SAC20231130000350

PATIENT
  Sex: Male

DRUGS (2)
  1. ALPROLIX [Suspect]
     Active Substance: EFTRENONACOG ALFA
     Dosage: 1500 U
     Route: 065
  2. ALPROLIX [Suspect]
     Active Substance: EFTRENONACOG ALFA
     Dosage: 1500 U
     Route: 065

REACTIONS (1)
  - Nasopharyngitis [Unknown]
